FAERS Safety Report 8885781 (Version 4)
Quarter: 2013Q1

REPORT INFORMATION
  Report Type: Spontaneous
  Country: JP (occurrence: JP)
  Receive Date: 20121102
  Receipt Date: 20130327
  Transmission Date: 20140127
  Serious: Yes (Hospitalization, Other)
  Sender: FDA-Public Use
  Company Number: JP-PFIZER INC-2012270839

PATIENT
  Age: 79 Year
  Sex: Male

DRUGS (11)
  1. SEIBULE [Suspect]
     Indication: TYPE 2 DIABETES MELLITUS
     Dosage: 150 MG, 1X/DAY
     Route: 048
     Dates: start: 20120804, end: 20121004
  2. SEIBULE [Suspect]
     Dosage: UNK
     Route: 065
  3. JANUVIA [Suspect]
     Indication: TYPE 2 DIABETES MELLITUS
     Dosage: 50 MG, 1X/DAY
     Route: 048
     Dates: start: 20120804, end: 20121004
  4. ALLOPURINOL [Suspect]
     Indication: HYPERURICAEMIA
     Dosage: UNK
     Route: 048
     Dates: start: 20120804, end: 20121009
  5. OPALMON [Concomitant]
     Indication: SCIATICA
     Dosage: UNK
     Dates: start: 2010, end: 201208
  6. METHYCOBAL [Concomitant]
     Indication: SCIATICA
     Dosage: UNK
     Dates: start: 2010, end: 201208
  7. DEANOSART [Concomitant]
     Dosage: UNK
     Dates: start: 20120804, end: 20121009
  8. CEPHADOL [Concomitant]
     Dosage: UNK
     Dates: start: 20120804, end: 20121009
  9. EXCELASE [Concomitant]
     Dosage: UNK
     Dates: start: 20120804, end: 20121009
  10. ALFAROL [Concomitant]
     Indication: SCIATICA
     Dosage: UNK
     Dates: start: 2010, end: 201208
  11. BAYASPIRIN [Concomitant]
     Dosage: UNK
     Dates: start: 20120804, end: 20121009

REACTIONS (1)
  - Hepatic function abnormal [Recovered/Resolved]
